FAERS Safety Report 13935933 (Version 1)
Quarter: 2017Q3

REPORT INFORMATION
  Report Type: Spontaneous
  Country: US (occurrence: US)
  Receive Date: 20170904
  Receipt Date: 20170904
  Transmission Date: 20171127
  Serious: Yes (Other)
  Sender: FDA-Public Use
  Company Number: None

PATIENT
  Sex: Female
  Weight: 67.5 kg

DRUGS (1)
  1. NITROFURANTOIN MONOHYDRATE MACROCRYSTALS [Suspect]
     Active Substance: NITROFURANTOIN\NITROFURANTOIN MONOHYDRATE
     Indication: URINARY TRACT INFECTION
     Dosage: ?          QUANTITY:1 CAPSULE(S);?
     Route: 048
     Dates: start: 20170824, end: 20170831

REACTIONS (7)
  - Feeling abnormal [None]
  - Skin exfoliation [None]
  - Photosensitivity reaction [None]
  - Erythema [None]
  - Swelling face [None]
  - Nasal oedema [None]
  - Skin disorder [None]

NARRATIVE: CASE EVENT DATE: 20170827
